FAERS Safety Report 9816149 (Version 1)
Quarter: 2014Q1

REPORT INFORMATION
  Report Type: Spontaneous
  Country: US (occurrence: US)
  Receive Date: 20140114
  Receipt Date: 20140114
  Transmission Date: 20141002
  Serious: Yes (Other)
  Sender: FDA-Public Use
  Company Number: US-PFIZER INC-2014008100

PATIENT
  Age: 87 Year
  Sex: Female
  Weight: 72.56 kg

DRUGS (1)
  1. CELEBREX [Suspect]
     Dosage: 200 MG, 1X/DAY

REACTIONS (2)
  - Cardiac disorder [Unknown]
  - Arthropathy [Unknown]
